FAERS Safety Report 11070644 (Version 1)
Quarter: 2015Q2

REPORT INFORMATION
  Report Type: Spontaneous
  Country: JP (occurrence: JP)
  Receive Date: 20150427
  Receipt Date: 20150427
  Transmission Date: 20150821
  Serious: Yes (Hospitalization)
  Sender: FDA-Public Use
  Company Number: ALJP2015JP000566

PATIENT
  Age: 63 Year
  Sex: Female

DRUGS (3)
  1. BSS PLUS [Suspect]
     Active Substance: CALCIUM CHLORIDE\DEXTROSE\MAGNESIUM CHLORIDE\OXIGLUTATIONE\POTASSIUM CHLORIDE\SODIUM BICARBONATE\SODIUM CHLORIDE\SODIUM PHOSPHATE\SODIUM PHOSPHATE, DIBASIC
     Indication: INTRAOCULAR LENS IMPLANT
     Dosage: 1 DF, QD
     Route: 031
     Dates: start: 20150310, end: 20150310
  2. VEGAMOX OPHTHALMIC SOLUTION 0.5% [Concomitant]
     Indication: PREOPERATIVE CARE
     Dosage: UNK, TID
     Route: 047
  3. VEGAMOX OPHTHALMIC SOLUTION 0.5% [Concomitant]
     Dosage: UNK, TID
     Route: 047
     Dates: start: 20150311

REACTIONS (1)
  - Endophthalmitis [Recovering/Resolving]

NARRATIVE: CASE EVENT DATE: 20150315
